FAERS Safety Report 15691395 (Version 9)
Quarter: 2019Q2

REPORT INFORMATION
  Report Type: Spontaneous
  Country: US (occurrence: US)
  Receive Date: 20181205
  Receipt Date: 20190426
  Transmission Date: 20190711
  Serious: Yes (Hospitalization, Other)
  Sender: FDA-Public Use
  Company Number: US-SA-2018SA331576

PATIENT
  Age: 71 Year
  Sex: Female
  Weight: 72.5 kg

DRUGS (15)
  1. ACETAMINOPHEN. [Concomitant]
     Active Substance: ACETAMINOPHEN
     Dosage: 650 MG, PRN
     Route: 048
     Dates: start: 20181116
  2. STERILE WATER [Concomitant]
     Active Substance: WATER
     Dosage: 0.9 % FLUSHING
     Route: 065
     Dates: start: 20181116
  3. FABRAZYME [Suspect]
     Active Substance: AGALSIDASE BETA
     Indication: LIPIDOSIS
     Dosage: 65 MG
     Route: 041
     Dates: start: 20180627
  4. XYZAL [Concomitant]
     Active Substance: LEVOCETIRIZINE DIHYDROCHLORIDE
     Dosage: 5 MG, PRN
     Route: 065
     Dates: start: 20181128
  5. NORMAL SALINE [Concomitant]
     Active Substance: SODIUM CHLORIDE
     Dosage: 0.9 UNK
     Route: 042
     Dates: start: 20180627
  6. ASPIRIN [ACETYLSALICYLIC ACID] [Concomitant]
     Active Substance: ASPIRIN
     Dosage: 81 MG, QD
     Route: 050
     Dates: start: 20180606
  7. FLONASE [MOMETASONE FUROATE] [Concomitant]
     Active Substance: MOMETASONE FUROATE
     Dosage: 50 MCG 1 SPRAY IN EACH NOSTRIL DAILY
     Dates: start: 20181012
  8. CARVEDILOL. [Concomitant]
     Active Substance: CARVEDILOL
     Dosage: 25 MG, QD
     Route: 065
     Dates: start: 20180606
  9. ALLERGY RELIEF [FEXOFENADINE HYDROCHLORIDE] [Concomitant]
     Dosage: 10 MG, QD
     Route: 048
     Dates: start: 20181012
  10. CORICIDIN HBP [Concomitant]
     Active Substance: ACETAMINOPHEN\CHLORPHENIRAMINE MALEATE
     Dosage: 500 MG, PRN
     Route: 065
     Dates: start: 20181128
  11. HYDROCORTISONE. [Concomitant]
     Active Substance: HYDROCORTISONE
     Dosage: 100 MG, PRN
     Route: 065
     Dates: start: 20181116
  12. HYDROCORTISONE. [Concomitant]
     Active Substance: HYDROCORTISONE
     Dosage: 100 UNK
     Dates: start: 20180627
  13. NORMAL SALINE [Concomitant]
     Active Substance: SODIUM CHLORIDE
     Dosage: 0.9 % DILUENT
     Route: 065
     Dates: start: 20181116
  14. EPINEPHRINE. [Concomitant]
     Active Substance: EPINEPHRINE
     Indication: ANAPHYLACTIC REACTION
     Dosage: 0.3 MG, PRN
     Route: 050
     Dates: start: 20181116
  15. CANDESARTAN CILEXETIL. [Concomitant]
     Active Substance: CANDESARTAN CILEXETIL
     Dosage: 32 MG, QD
     Route: 050
     Dates: start: 20180606

REACTIONS (10)
  - Hospitalisation [Unknown]
  - Burning sensation [Unknown]
  - Nasopharyngitis [Unknown]
  - Oropharyngeal pain [Unknown]
  - Hypoaesthesia [Unknown]
  - Dizziness [Recovered/Resolved]
  - General physical health deterioration [Unknown]
  - Upper-airway cough syndrome [Not Recovered/Not Resolved]
  - Asthenia [Unknown]
  - Sinusitis [Not Recovered/Not Resolved]
